FAERS Safety Report 8536935-8 (Version None)
Quarter: 2012Q3

REPORT INFORMATION
  Report Type: 
  Country: None (occurrence: None)
  Receive Date: 20120725
  Receipt Date: 20120720
  Transmission Date: 20120928
  Serious: No
  Sender: FDA-Public Use
  Company Number: US-BAYER-2012-073889

PATIENT
  Age: 48 Year
  Sex: Male

DRUGS (1)
  1. MAGNEVIST [Suspect]
     Indication: NUCLEAR MAGNETIC RESONANCE IMAGING
     Dosage: 21 ML, ONCE
     Route: 042
     Dates: start: 20120718, end: 20120718

REACTIONS (4)
  - PALPITATIONS [None]
  - ABDOMINAL DISCOMFORT [None]
  - FLUSHING [None]
  - DYSGEUSIA [None]
